FAERS Safety Report 6870731-2 (Version None)
Quarter: 2010Q3

REPORT INFORMATION
  Report Type: 
  Country: None (occurrence: None)
  Receive Date: 20100723
  Receipt Date: 20100625
  Transmission Date: 20110219
  Serious: Yes (Hospitalization, Disabling)
  Sender: FDA-Public Use
  Company Number: PHHO2009FR02280

PATIENT
  Sex: Female
  Weight: 48 kg

DRUGS (3)
  1. AFINITOR [Suspect]
     Indication: PANCREATIC NEUROENDOCRINE TUMOUR
     Dosage: 10 MG DAILY
     Route: 048
     Dates: start: 20080311, end: 20081030
  2. AFINITOR [Suspect]
     Dosage: DOUBLE BLIND
     Route: 048
     Dates: start: 20081213, end: 20090113
  3. AFINITOR [Suspect]
     Dosage: DOUBLE BLIND
     Route: 048
     Dates: start: 20090122, end: 20090212

REACTIONS (2)
  - CHOLESTASIS [None]
  - HYPERCALCAEMIA [None]
